FAERS Safety Report 7337560-7 (Version None)
Quarter: 2011Q1

REPORT INFORMATION
  Report Type: 
  Country: None (occurrence: None)
  Receive Date: 20110308
  Receipt Date: 20110308
  Transmission Date: 20110831
  Serious: Yes (Other)
  Sender: FDA-Public Use
  Company Number: CN-ROXANE LABORATORIES, INC.-2011-DE-01345GD

PATIENT
  Age: 15 Year
  Sex: Male

DRUGS (2)
  1. HEPARIN SODIUM [Suspect]
     Indication: OEDEMA
     Dosage: 50 MG
     Route: 042
  2. PREDNISONE [Suspect]
     Indication: OEDEMA
     Dosage: 1 MG/KG/DAY
     Route: 048

REACTIONS (1)
  - PRIAPISM [None]
